FAERS Safety Report 11440142 (Version 5)
Quarter: 2015Q4

REPORT INFORMATION
  Report Type: Spontaneous
  Country: US (occurrence: US)
  Receive Date: 20150901
  Receipt Date: 20151111
  Transmission Date: 20160304
  Serious: Yes (Hospitalization, Congenital Anomaly, Other)
  Sender: FDA-Public Use
  Company Number: US-ELI_LILLY_AND_COMPANY-US201508007468

PATIENT
  Age: 0 Day

DRUGS (1)
  1. PROZAC [Suspect]
     Active Substance: FLUOXETINE HYDROCHLORIDE
     Indication: PRODUCT USED FOR UNKNOWN INDICATION
     Dosage: 1 DF, UNKNOWN
     Route: 065

REACTIONS (12)
  - Ventricular dysfunction [Unknown]
  - Hypoparathyroidism [Unknown]
  - Foetal exposure during pregnancy [Recovered/Resolved]
  - Hypocalcaemia [Unknown]
  - Cleft palate [Unknown]
  - Facial asymmetry [Not Recovered/Not Resolved]
  - VIIth nerve paralysis [Unknown]
  - Cardiac murmur [Unknown]
  - Cardiomyopathy [Recovered/Resolved]
  - Cyanosis [Unknown]
  - DiGeorge^s syndrome [Not Recovered/Not Resolved]
  - Respiratory distress [Unknown]

NARRATIVE: CASE EVENT DATE: 20100920
